FAERS Safety Report 9553320 (Version 1)
Quarter: 2013Q3

REPORT INFORMATION
  Report Type: Spontaneous
  Country: US (occurrence: None)
  Receive Date: 20130916
  Receipt Date: 20130916
  Transmission Date: 20140515
  Serious: Yes (Other)
  Sender: FDA-Public Use
  Company Number: JPI-P-018923

PATIENT
  Age: 69 Year
  Sex: Female

DRUGS (18)
  1. XYREM [Suspect]
     Indication: SLEEP DISORDER
     Dosage: 4.5 GM (2.25 GM, 2 IN 1 D), ORAL
     Route: 048
     Dates: start: 20101209
  2. XYREM [Suspect]
     Indication: NARCOLEPSY
     Dosage: 4.5 GM (2.25 GM, 2 IN 1 D), ORAL
     Route: 048
     Dates: start: 20101209
  3. GABAPENTIN ENACARBIL [Suspect]
     Indication: RESTLESS LEGS SYNDROME
  4. MORPHINE [Concomitant]
  5. AMLODIPINE BESYLATE [Concomitant]
  6. TELMISARTAN [Concomitant]
  7. HYDROXYCHLOROQUINE [Concomitant]
  8. HYDROXYZINE [Concomitant]
  9. POLYETHYLENE CLYCOL [Concomitant]
  10. LUBIPROSTONE [Concomitant]
  11. DULOXETINE HYDROCHLORIDE [Concomitant]
  12. PROPRANOLOL [Concomitant]
  13. CLONAZEPAM [Concomitant]
  14. VITAMIN D [Concomitant]
  15. PRAMIPEXOLE [Concomitant]
  16. TAPENTADOL [Concomitant]
  17. CARBIDOPA-LEVODOPA [Concomitant]
  18. AMLODIPINE [Concomitant]

REACTIONS (20)
  - Weight decreased [None]
  - Toe operation [None]
  - Local swelling [None]
  - Skin discolouration [None]
  - Choking [None]
  - Productive cough [None]
  - Peripheral coldness [None]
  - Hot flush [None]
  - Contusion [None]
  - Intentional self-injury [None]
  - Feeling hot [None]
  - Hyperhidrosis [None]
  - Initial insomnia [None]
  - Insomnia [None]
  - Restless legs syndrome [None]
  - Condition aggravated [None]
  - Fatigue [None]
  - Retching [None]
  - Decreased appetite [None]
  - Fall [None]
